FAERS Safety Report 10618352 (Version 1)
Quarter: 2014Q4

REPORT INFORMATION
  Report Type: Spontaneous
  Country: FR (occurrence: FR)
  Receive Date: 20141202
  Receipt Date: 20141202
  Transmission Date: 20150529
  Serious: Yes (Life-Threatening)
  Sender: FDA-Public Use
  Company Number: FR-MERCK-1411FRA012052

PATIENT
  Age: 13 Year
  Sex: Female

DRUGS (5)
  1. TAZOCILLINE [Suspect]
     Active Substance: PIPERACILLIN SODIUM\TAZOBACTAM SODIUM
     Indication: FEBRILE BONE MARROW APLASIA
     Dosage: 3600MG, QID
     Route: 042
     Dates: start: 20141101, end: 20141114
  2. CANCIDAS [Suspect]
     Active Substance: CASPOFUNGIN ACETATE
     Dosage: 70MG, THEN  50MG, QD
     Route: 042
     Dates: start: 20141111, end: 20141114
  3. AMIKACIN [Suspect]
     Active Substance: AMIKACIN
     Indication: FEBRILE BONE MARROW APLASIA
     Dosage: 700 MG, QD
     Route: 042
     Dates: start: 20141112, end: 20141114
  4. IMIPENEM AND CILASTATIN [Suspect]
     Active Substance: CILASTATIN SODIUM\IMIPENEM
     Indication: FEBRILE BONE MARROW APLASIA
     Dosage: 500 MG, QID
     Route: 042
     Dates: start: 20141112, end: 20141114
  5. VANCOMYCIN [Suspect]
     Active Substance: VANCOMYCIN
     Indication: FEBRILE BONE MARROW APLASIA
     Dosage: 1.5 G, QD
     Route: 042
     Dates: start: 20141103, end: 20141113

REACTIONS (3)
  - Hypotension [Recovering/Resolving]
  - Pyrexia [Recovering/Resolving]
  - Dermatitis exfoliative [Recovering/Resolving]

NARRATIVE: CASE EVENT DATE: 20141112
